FAERS Safety Report 4729132-5 (Version None)
Quarter: 2005Q3

REPORT INFORMATION
  Report Type: 
  Country: None (occurrence: None)
  Receive Date: 20050729
  Receipt Date: 20040603
  Transmission Date: 20060218
  Serious: No
  Sender: FDA-Public Use
  Company Number: US-GLAXOSMITHKLINE-A0513279A

PATIENT
  Sex: Female

DRUGS (13)
  1. IMITREX [Suspect]
     Indication: MIGRAINE
     Dosage: 1TAB AS REQUIRED
     Route: 048
     Dates: start: 20040401
  2. ESTRACE [Concomitant]
  3. ACTONEL [Concomitant]
  4. PROMETRIUM [Concomitant]
  5. CITRACAL [Concomitant]
  6. ASPIRIN [Concomitant]
  7. ASTELIN [Concomitant]
  8. ADVAIR DISKUS 100/50 [Concomitant]
  9. ASCORBIC ACID [Concomitant]
  10. VITAMIN E [Concomitant]
  11. BETA CAROTENE [Concomitant]
  12. ZINC OXIDE [Concomitant]
  13. COPPER [Concomitant]

REACTIONS (1)
  - SOMNOLENCE [None]
